FAERS Safety Report 11529397 (Version 1)
Quarter: 2015Q3

REPORT INFORMATION
  Report Type: Spontaneous
  Country: FR (occurrence: FR)
  Receive Date: 20150921
  Receipt Date: 20150921
  Transmission Date: 20151125
  Serious: Yes (Death)
  Sender: FDA-Public Use
  Company Number: FR-SA-2015SA141810

PATIENT
  Age: 2 Month
  Sex: Female

DRUGS (28)
  1. LASILIX [Suspect]
     Active Substance: FUROSEMIDE
     Indication: PATENT DUCTUS ARTERIOSUS
     Route: 065
     Dates: start: 20150101, end: 20150130
  2. RIFAMYCINE CHIBRET [Suspect]
     Active Substance: RIFAMYCIN
     Indication: PROPHYLAXIS
     Dosage: ROUTE: IO
     Dates: start: 20141217
  3. NEOSYNEPHRINE [Suspect]
     Active Substance: PHENYLEPHRINE HYDROCHLORIDE
     Indication: DIAGNOSTIC PROCEDURE
     Dosage: ROUTE: IO
     Dates: start: 20150317
  4. BACTROBAN [Suspect]
     Active Substance: MUPIROCIN\MUPIROCIN CALCIUM
     Indication: INFECTION
     Route: 065
     Dates: start: 20150204, end: 20150209
  5. TRIFLUCAN [Suspect]
     Active Substance: FLUCONAZOLE
     Indication: INFECTION PROPHYLAXIS
     Route: 065
     Dates: start: 20141219, end: 20150212
  6. INFANRIX HEXA [Suspect]
     Active Substance: DIPHTHERIA AND TETANUS TOXOIDS AND ACELLULAR PERTUSSIS ADSORBED, INACTIVATED POLIOVIRUS AND HAEMOPHILUS B CONJUGATE AND HEPATITIS B VIRUS VACCINE
     Indication: IMMUNISATION
     Route: 065
     Dates: start: 20150216
  7. TROPICAMIDE. [Suspect]
     Active Substance: TROPICAMIDE
     Indication: DIAGNOSTIC PROCEDURE
     Dosage: ROUTE: IO
     Dates: start: 20150317
  8. CEFOTAXIME [Suspect]
     Active Substance: CEFOTAXIME SODIUM
     Indication: STAPHYLOCOCCAL SEPSIS
     Route: 042
     Dates: start: 20141225, end: 20141226
  9. BRISTOPEN [Suspect]
     Active Substance: OXACILLIN SODIUM
     Indication: STAPHYLOCOCCAL SEPSIS
     Route: 042
     Dates: start: 20141225, end: 20150106
  10. BACTROBAN [Suspect]
     Active Substance: MUPIROCIN\MUPIROCIN CALCIUM
     Indication: INFECTION
     Route: 065
     Dates: start: 20150103, end: 20150107
  11. TOBREX [Suspect]
     Active Substance: TOBRAMYCIN
     Indication: INFECTION
     Dosage: ROUTE: IO
     Dates: start: 20150113, end: 20150121
  12. PREVNAR 13 [Suspect]
     Active Substance: PNEUMOCOCCAL 13-VALENT CONJUGATE VACCINE
     Indication: IMMUNISATION
     Route: 065
     Dates: start: 20150216
  13. CAFFEINE. [Suspect]
     Active Substance: CAFFEINE
     Indication: APNOEA NEONATAL
     Route: 065
     Dates: start: 20141217
  14. ALDACTONE [Suspect]
     Active Substance: SPIRONOLACTONE
     Indication: PATENT DUCTUS ARTERIOSUS
     Route: 065
     Dates: start: 20150106
  15. VANCOMYCINE [Suspect]
     Active Substance: VANCOMYCIN
     Indication: STAPHYLOCOCCAL SEPSIS
     Route: 042
     Dates: start: 20141225, end: 20141226
  16. CUROSURF [Concomitant]
     Active Substance: PORACTANT ALFA
  17. VASELINE PURE [Concomitant]
     Active Substance: PETROLATUM
  18. VITAMIN K [Suspect]
     Active Substance: PHYTONADIONE
     Indication: HAEMORRHAGE PROPHYLAXIS
     Route: 048
     Dates: start: 20141217
  19. BACTROBAN [Suspect]
     Active Substance: MUPIROCIN\MUPIROCIN CALCIUM
     Indication: INFECTION
     Route: 065
     Dates: start: 20150218, end: 20150223
  20. INFANRIX HEXA [Suspect]
     Active Substance: DIPHTHERIA AND TETANUS TOXOIDS AND ACELLULAR PERTUSSIS ADSORBED, INACTIVATED POLIOVIRUS AND HAEMOPHILUS B CONJUGATE AND HEPATITIS B VIRUS VACCINE
     Indication: IMMUNISATION
     Route: 065
     Dates: start: 20150316
  21. BACTROBAN [Suspect]
     Active Substance: MUPIROCIN\MUPIROCIN CALCIUM
     Indication: INFECTION
     Route: 065
     Dates: start: 20150303, end: 20150308
  22. NEOSYNEPHRINE [Suspect]
     Active Substance: PHENYLEPHRINE HYDROCHLORIDE
     Indication: DIAGNOSTIC PROCEDURE
     Dosage: ROUTE: IO
     Dates: start: 20150310
  23. NEOSYNEPHRINE [Suspect]
     Active Substance: PHENYLEPHRINE HYDROCHLORIDE
     Indication: DIAGNOSTIC PROCEDURE
     Dosage: ROUTE: IO
     Dates: start: 20150222
  24. TROPICAMIDE. [Suspect]
     Active Substance: TROPICAMIDE
     Indication: DIAGNOSTIC PROCEDURE
     Dosage: ROUTE: IO
     Dates: start: 20150222
  25. PREVNAR 13 [Suspect]
     Active Substance: PNEUMOCOCCAL 13-VALENT CONJUGATE VACCINE
     Indication: IMMUNISATION
     Route: 065
     Dates: start: 20150316
  26. RIFAMYCINE CHIBRET [Suspect]
     Active Substance: RIFAMYCIN
     Indication: PROPHYLAXIS
     Dosage: ROUTE: IO
     Dates: start: 20150108, end: 20150112
  27. TROPICAMIDE. [Suspect]
     Active Substance: TROPICAMIDE
     Indication: DIAGNOSTIC PROCEDURE
     Dosage: ROUTE: IO
     Dates: start: 20150310
  28. ALBUMIN [Concomitant]
     Active Substance: ALBUMIN (HUMAN)

REACTIONS (1)
  - Necrotising enterocolitis neonatal [Fatal]

NARRATIVE: CASE EVENT DATE: 20150304
